FAERS Safety Report 10376446 (Version 13)
Quarter: 2014Q4

REPORT INFORMATION
  Report Type: Report from Study
  Country: US (occurrence: US)
  Receive Date: 20140811
  Receipt Date: 20141229
  Transmission Date: 20150528
  Serious: Yes (Hospitalization, Other)
  Sender: FDA-Public Use
  Company Number: US-BAYER-2014-115819

PATIENT
  Age: 49 Year
  Sex: Female
  Weight: 107.3 kg

DRUGS (6)
  1. ADEMPAS [Suspect]
     Active Substance: RIOCIGUAT
     Indication: PRODUCT USED FOR UNKNOWN INDICATION
     Dosage: 0.5 MG, TID
     Route: 048
     Dates: start: 20140627
  2. ADEMPAS [Suspect]
     Active Substance: RIOCIGUAT
     Indication: PRODUCT USED FOR UNKNOWN INDICATION
     Dosage: 1 MG, TID
     Route: 048
     Dates: start: 20140630
  3. ADEMPAS [Suspect]
     Active Substance: RIOCIGUAT
     Indication: PRODUCT USED FOR UNKNOWN INDICATION
     Dosage: 0.5 MG, TID
     Dates: start: 20140820
  4. WARFARIN [Concomitant]
     Active Substance: WARFARIN
  5. ADEMPAS [Suspect]
     Active Substance: RIOCIGUAT
     Indication: PRODUCT USED FOR UNKNOWN INDICATION
     Dosage: 1 MG, TID
     Route: 048
     Dates: start: 20140627, end: 201411
  6. ADEMPAS [Suspect]
     Active Substance: RIOCIGUAT
     Indication: PRODUCT USED FOR UNKNOWN INDICATION
     Dosage: 0.5 MG, TID

REACTIONS (9)
  - Oedema peripheral [None]
  - Drug intolerance [None]
  - Dyspnoea [Recovering/Resolving]
  - Cataract operation [None]
  - Cellulitis [None]
  - Dizziness [None]
  - Rash [None]
  - Malaise [None]
  - Nasopharyngitis [Unknown]
